FAERS Safety Report 6651385-7 (Version None)
Quarter: 2010Q1

REPORT INFORMATION
  Report Type: 
  Country: None (occurrence: None)
  Receive Date: 20100325
  Receipt Date: 20100318
  Transmission Date: 20100710
  Serious: Yes (Death, Hospitalization, Disabling)
  Sender: FDA-Public Use
  Company Number: ES-ROCHE-651823

PATIENT
  Sex: Male
  Weight: 69 kg

DRUGS (11)
  1. BEVACIZUMAB [Suspect]
     Dosage: LAST DOSE PRIOR TO SAE: 27 JULY 2009. FORM REPORTED  INFUSION, PERMANENTLY DISCONTINUED.
     Route: 042
     Dates: start: 20090615, end: 20090817
  2. CAPECITABINE [Suspect]
     Dosage: LAST DOSE PRIOR TO SAE: 02 AUGUST 2009. FREQUENCY:D2-D8; Q2W.PERMANENTLY DISCONTINUED
     Route: 048
     Dates: start: 20090615, end: 20090817
  3. IRINOTECAN HCL [Suspect]
     Dosage: LAST DOSE PRIOR TO SAE: 27 JULY 2009. FORM : INFUSION. PERMANENTLY DISCONTINUED
     Route: 042
     Dates: start: 20090615, end: 20090817
  4. NOLOTIL [Concomitant]
     Dates: start: 20090615
  5. ADOLONTA [Concomitant]
     Dates: start: 20090615
  6. HEPARIN [Concomitant]
     Dates: start: 20040531
  7. HALOPERIDOL [Concomitant]
     Dates: start: 20090907
  8. OMEPRAZOLE [Concomitant]
     Dates: start: 20090907
  9. FORTECORTIN [Concomitant]
     Dates: start: 20090818
  10. PARACETAMOL [Concomitant]
     Dates: start: 20090907
  11. ATROVENT [Concomitant]
     Dates: start: 20090818

REACTIONS (9)
  - ALANINE AMINOTRANSFERASE INCREASED [None]
  - ASPARTATE AMINOTRANSFERASE INCREASED [None]
  - CARDIAC FAILURE [None]
  - DYSPNOEA [None]
  - GENERAL PHYSICAL HEALTH DETERIORATION [None]
  - HYPERTHERMIA [None]
  - ORTHOPNOEA [None]
  - PULMONARY EMBOLISM [None]
  - VENOUS INSUFFICIENCY [None]
